FAERS Safety Report 6167632-4 (Version None)
Quarter: 2009Q2

REPORT INFORMATION
  Report Type: 
  Country: None (occurrence: None)
  Receive Date: 20090424
  Receipt Date: 20070118
  Transmission Date: 20091009
  Serious: Yes (Disabling, Other)
  Sender: FDA-Public Use
  Company Number: PHNR2006AU01274

PATIENT
  Age: 55 Year
  Sex: Male

DRUGS (9)
  1. TEGRETOL [Suspect]
     Indication: ANTIDEPRESSANT THERAPY
     Dosage: 400 MG, UNK
     Route: 048
     Dates: start: 20020801, end: 20040101
  2. DOTHIEPIN [Concomitant]
  3. TEMAZEPAM [Concomitant]
  4. BETAHISTINE [Concomitant]
  5. CELECOXIB [Concomitant]
  6. PANTOPRAZOLE SODIUM [Concomitant]
  7. QUININE [Concomitant]
  8. COLOXYL [Concomitant]
  9. SENNA [Concomitant]

REACTIONS (1)
  - ANOSMIA [None]
